FAERS Safety Report 14154545 (Version 8)
Quarter: 2018Q3

REPORT INFORMATION
  Report Type: Report from Study
  Country: US (occurrence: US)
  Receive Date: 20171102
  Receipt Date: 20180720
  Transmission Date: 20181010
  Serious: Yes (Hospitalization)
  Sender: FDA-Public Use
  Company Number: US-ACTELION-A-US2016-145959

PATIENT
  Age: 82 Year
  Sex: Female
  Weight: 64.4 kg

DRUGS (2)
  1. ADEMPAS [Concomitant]
     Active Substance: RIOCIGUAT
  2. OPSUMIT [Suspect]
     Active Substance: MACITENTAN
     Indication: PULMONARY ARTERIAL HYPERTENSION
     Dosage: 10 MG, QD
     Route: 048
     Dates: start: 20140926

REACTIONS (22)
  - Nasopharyngitis [Unknown]
  - Fatigue [Unknown]
  - Peripheral swelling [Unknown]
  - Hypoacusis [Unknown]
  - Headache [Unknown]
  - Oedema [Unknown]
  - Dyspnoea [Unknown]
  - Exercise tolerance decreased [Unknown]
  - Abdominal distension [Unknown]
  - Treatment noncompliance [Unknown]
  - Diarrhoea [Unknown]
  - Coronary artery disease [Unknown]
  - Nausea [Unknown]
  - Stent placement [Unknown]
  - Dizziness [Unknown]
  - Hypophagia [Unknown]
  - Fluid retention [Unknown]
  - Ascites [Unknown]
  - Dyspepsia [Unknown]
  - Cardiac failure congestive [Unknown]
  - Vomiting [Unknown]
  - Gastroenteritis [Unknown]
